FAERS Safety Report 11323965 (Version 1)
Quarter: 2015Q3

REPORT INFORMATION
  Report Type: Spontaneous
  Country: IT (occurrence: IT)
  Receive Date: 20150730
  Receipt Date: 20150730
  Transmission Date: 20151125
  Serious: Yes (Death)
  Sender: FDA-Public Use
  Company Number: IT-HOSPIRA-2541755

PATIENT
  Age: 73 Year
  Sex: Male

DRUGS (3)
  1. GEMCITABINE HYDROCHLORIDE. [Suspect]
     Active Substance: GEMCITABINE HYDROCHLORIDE
     Indication: LUNG NEOPLASM
     Dosage: DAILY
     Route: 042
     Dates: start: 20111026, end: 20111102
  2. DEXAMETHASONE. [Concomitant]
     Active Substance: DEXAMETHASONE
     Indication: PRODUCT USED FOR UNKNOWN INDICATION
     Route: 042
     Dates: start: 20111026, end: 20111102
  3. AVASTIN [Suspect]
     Active Substance: BEVACIZUMAB
     Indication: LUNG NEOPLASM
     Dosage: DAILY
     Route: 042
     Dates: start: 20111026, end: 20111102

REACTIONS (2)
  - Acute pulmonary oedema [Fatal]
  - Cardiac failure [Fatal]

NARRATIVE: CASE EVENT DATE: 20111104
